FAERS Safety Report 8836915 (Version 1)
Quarter: 2012Q4

REPORT INFORMATION
  Report Type: 
  Country: DE (occurrence: DE)
  Receive Date: 20121012
  Receipt Date: 20121012
  Transmission Date: 20130627
  Serious: Yes (Other)
  Sender: FDA-Public Use
  Company Number: DE-ACTELION-A-CH2012-72549

PATIENT
  Age: 12 Year
  Sex: Female

DRUGS (6)
  1. ZAVESCA [Suspect]
     Indication: NIEMANN-PICK DISEASE
     Dosage: UNK
     Route: 048
  2. ZAVESCA [Suspect]
     Dosage: 50 mg, tid
     Route: 048
     Dates: start: 201005
  3. ZAVESCA [Suspect]
     Dosage: 200 mg, tid
     Route: 048
  4. LAMOTRIGIN [Concomitant]
  5. KEPPRA [Concomitant]
  6. PERENTEROL [Concomitant]

REACTIONS (6)
  - Crohn^s disease [Unknown]
  - Abdominal symptom [Unknown]
  - Diarrhoea [Unknown]
  - Underweight [Unknown]
  - Anal fissure [Unknown]
  - Localised infection [Unknown]
